FAERS Safety Report 5534365-4 (Version None)
Quarter: 2007Q4

REPORT INFORMATION
  Report Type: 
  Country: None (occurrence: None)
  Receive Date: 20071205
  Receipt Date: 20071129
  Transmission Date: 20080405
  Serious: Yes (Hospitalization)
  Sender: FDA-Public Use
  Company Number: US-BAYER-200714803NA

PATIENT
  Age: 22 Month
  Sex: Male

DRUGS (1)
  1. ADALAT ER [Suspect]
     Indication: DRUG USE FOR UNKNOWN INDICATION
     Route: 048
     Dates: start: 20071005

REACTIONS (2)
  - DRUG ADMINISTRATION ERROR [None]
  - ILL-DEFINED DISORDER [None]
